FAERS Safety Report 5220951-8 (Version None)
Quarter: 2007Q1

REPORT INFORMATION
  Report Type: 
  Country: None (occurrence: None)
  Receive Date: 20070124
  Receipt Date: 20070111
  Transmission Date: 20070707
  Serious: Yes (Disabling)
  Sender: FDA-Public Use
  Company Number: 2006US002951

PATIENT
  Age: 60 Year
  Sex: 0

DRUGS (2)
  1. AMBISOME [Suspect]
     Indication: MENINGITIS CRYPTOCOCCAL
     Dosage: 350 MG, UID/QD, IV DRIP
     Route: 041
     Dates: start: 20061101
  2. VFEND [Suspect]
     Indication: DRUG USE FOR UNKNOWN INDICATION
     Dates: start: 20061022

REACTIONS (5)
  - BLOOD CREATININE INCREASED [None]
  - BLOOD POTASSIUM DECREASED [None]
  - DEAFNESS [None]
  - ORAL INTAKE REDUCED [None]
  - TINNITUS [None]
